FAERS Safety Report 13091826 (Version 3)
Quarter: 2017Q3

REPORT INFORMATION
  Report Type: Spontaneous
  Country: US (occurrence: US)
  Receive Date: 20170106
  Receipt Date: 20170711
  Transmission Date: 20171127
  Serious: No
  Sender: FDA-Public Use
  Company Number: US-BAYER-2017-003093

PATIENT
  Age: 46 Year
  Sex: Female
  Weight: 56.24 kg

DRUGS (3)
  1. ALEVE [Suspect]
     Active Substance: NAPROXEN SODIUM
     Indication: MIGRAINE
  2. ALEVE [Suspect]
     Active Substance: NAPROXEN SODIUM
     Indication: PAIN
     Dosage: 1 DF, PRN
     Route: 048
  3. EXADON [Concomitant]
     Indication: MIGRAINE

REACTIONS (9)
  - Intentional product misuse [Unknown]
  - Lip swelling [None]
  - Mouth swelling [None]
  - Palpitations [None]
  - Oral pruritus [None]
  - Drug prescribing error [None]
  - Allergy to chemicals [Recovering/Resolving]
  - Product use in unapproved indication [None]
  - Lip pruritus [None]

NARRATIVE: CASE EVENT DATE: 2016
